FAERS Safety Report 11168127 (Version 1)
Quarter: 2015Q2

REPORT INFORMATION
  Report Type: Report from Study
  Country: CA (occurrence: CA)
  Receive Date: 20150605
  Receipt Date: 20150605
  Transmission Date: 20150821
  Serious: Yes (Other)
  Sender: FDA-Public Use
  Company Number: CA-JNJFOC-20150600338

PATIENT
  Sex: Male
  Weight: 80 kg

DRUGS (4)
  1. WARFARIN [Concomitant]
     Active Substance: WARFARIN
     Route: 065
  2. REMICADE [Suspect]
     Active Substance: INFLIXIMAB
     Indication: CROHN^S DISEASE
     Route: 042
     Dates: start: 20140725
  3. IBUPROFEN. [Concomitant]
     Active Substance: IBUPROFEN
     Dosage: PER DAY FOR LAST 2 MONTHS
     Route: 065
  4. REMICADE [Suspect]
     Active Substance: INFLIXIMAB
     Indication: CROHN^S DISEASE
     Dosage: LAST INFUSION
     Route: 042
     Dates: start: 20150424

REACTIONS (2)
  - Lupus-like syndrome [Unknown]
  - Interstitial lung disease [Unknown]
